FAERS Safety Report 7864649-6 (Version None)
Quarter: 2011Q4

REPORT INFORMATION
  Report Type: 
  Country: None (occurrence: None)
  Receive Date: 20111028
  Receipt Date: 20111019
  Transmission Date: 20120403
  Serious: Yes (Hospitalization)
  Sender: FDA-Public Use
  Company Number: US-CELGENEUS-163-CCAZA-11021762

PATIENT
  Age: 39 Year
  Sex: Male
  Weight: 67 kg

DRUGS (16)
  1. AZACITIDINE [Suspect]
     Indication: MYCOSIS FUNGOIDES
     Dosage: 25 MILLIGRAM/SQ. METER
     Route: 041
     Dates: start: 20110121, end: 20110125
  2. OXYCODONE HCL [Concomitant]
     Route: 065
  3. MS CONTIN [Concomitant]
     Dosage: 50 MILLIGRAM
     Route: 065
  4. CIPROFLOXACIN [Concomitant]
     Indication: EAR INFECTION
     Dosage: 500 MILLIGRAM
     Route: 065
     Dates: start: 20110201
  5. VANCOMYCIN HCL [Concomitant]
     Route: 065
     Dates: start: 20110224
  6. LOVENOX [Concomitant]
     Route: 065
     Dates: start: 20110201
  7. WARFARIN SODIUM [Concomitant]
  8. MORPHINE [Concomitant]
     Route: 065
  9. WARFARIN SODIUM [Concomitant]
     Dosage: UP TO 12 MG
     Route: 065
     Dates: start: 20110201
  10. CYCLOPHOSPHAMIDE [Suspect]
     Indication: MYCOSIS FUNGOIDES
     Route: 065
     Dates: start: 20110126, end: 20110129
  11. CELEXA [Concomitant]
     Route: 065
  12. KEFLEX [Concomitant]
  13. VINCRISTINE [Suspect]
     Indication: MYCOSIS FUNGOIDES
     Route: 065
     Dates: start: 20110128, end: 20110128
  14. PHENERGAN HCL [Concomitant]
     Route: 065
  15. VANCOMYCIN HCL [Concomitant]
  16. KEFLEX [Concomitant]
     Dosage: 500 MILLIGRAM
     Route: 048
     Dates: start: 20110201

REACTIONS (4)
  - HYPOTENSION [None]
  - DEHYDRATION [None]
  - FAILURE TO THRIVE [None]
  - PAIN [None]
